FAERS Safety Report 5831416-4 (Version None)
Quarter: 2008Q3

REPORT INFORMATION
  Report Type: 
  Country: None (occurrence: None)
  Receive Date: 20080801
  Receipt Date: 20080721
  Transmission Date: 20090109
  Serious: Yes (Death)
  Sender: FDA-Public Use
  Company Number: US-PFIZER INC-2008048382

PATIENT
  Sex: Male
  Weight: 113 kg

DRUGS (1)
  1. LINEZOLID [Suspect]
     Indication: PNEUMONIA
     Route: 042
     Dates: start: 20080503, end: 20080514

REACTIONS (1)
  - LUNG NEOPLASM MALIGNANT [None]
